FAERS Safety Report 25516009 (Version 1)
Quarter: 2025Q3

REPORT INFORMATION
  Report Type: Spontaneous
  Country: CN (occurrence: CN)
  Receive Date: 20250704
  Receipt Date: 20250704
  Transmission Date: 20251021
  Serious: Yes (Hospitalization, Other)
  Sender: NOVO NORDISK
  Company Number: CN-NOVOPROD-1468108

PATIENT
  Age: 51 Year
  Sex: Male
  Weight: 81 kg

DRUGS (2)
  1. NOVOLIN R [Suspect]
     Active Substance: INSULIN HUMAN
     Dates: end: 2024
  2. NOVOLIN R [Suspect]
     Active Substance: INSULIN HUMAN
     Indication: Hyperglycaemia
     Dates: start: 201706

REACTIONS (3)
  - Hypoglycaemia [Not Recovered/Not Resolved]
  - Pancreatic neuroendocrine tumour [Unknown]
  - Obesity [Not Recovered/Not Resolved]

NARRATIVE: CASE EVENT DATE: 20250401
